FAERS Safety Report 7765582-0 (Version None)
Quarter: 2011Q3

REPORT INFORMATION
  Report Type: 
  Country: None (occurrence: None)
  Receive Date: 20110921
  Receipt Date: 20110909
  Transmission Date: 20111222
  Serious: Yes (Other)
  Sender: FDA-Public Use
  Company Number: PHHY2011JP61259

PATIENT
  Sex: Male
  Weight: 70 kg

DRUGS (5)
  1. GLEEVEC [Suspect]
     Dosage: 400 MG, DAILY
     Route: 048
  2. GLEEVEC [Suspect]
     Indication: CHRONIC MYELOID LEUKAEMIA
     Dosage: 300 MG, DAILY
     Route: 048
     Dates: start: 20110118, end: 20110421
  3. JUZENTAIHOTO [Concomitant]
     Dosage: 7.5 G, UNK
     Route: 048
     Dates: start: 20100713, end: 20110421
  4. GLEEVEC [Suspect]
     Dosage: 200 MG, DAILY
     Route: 048
     Dates: start: 20110519
  5. BIOFERMIN [Concomitant]
     Dosage: 3 DF, UNK
     Route: 048
     Dates: start: 20100713, end: 20110421

REACTIONS (2)
  - ALANINE AMINOTRANSFERASE INCREASED [None]
  - ASPARTATE AMINOTRANSFERASE INCREASED [None]
